FAERS Safety Report 5321248-8 (Version None)
Quarter: 2007Q1

REPORT INFORMATION
  Report Type: 
  Country: None (occurrence: None)
  Receive Date: 20070215
  Receipt Date: 20061017
  Transmission Date: 20070707
  Serious: No
  Sender: FDA-Public Use
  Company Number: 200615551BWH

PATIENT
  Age: 48 Year
  Sex: Male
  Weight: 53.0709 kg

DRUGS (5)
  1. NEXAVAR [Suspect]
     Indication: RENAL CELL CARCINOMA STAGE IV
     Dosage: SEE IMAGE
     Route: 048
     Dates: start: 20060902, end: 20060901
  2. NEXAVAR [Suspect]
     Indication: RENAL CELL CARCINOMA STAGE IV
     Dosage: SEE IMAGE
     Route: 048
     Dates: start: 20060901
  3. LORTAB [Concomitant]
  4. SLEEP AID [Concomitant]
  5. COUMADIN [Concomitant]

REACTIONS (4)
  - DIARRHOEA [None]
  - PAIN OF SKIN [None]
  - RASH [None]
  - RASH GENERALISED [None]
